FAERS Safety Report 5908692-2 (Version None)
Quarter: 2008Q4

REPORT INFORMATION
  Report Type: 
  Country: None (occurrence: None)
  Receive Date: 20081006
  Receipt Date: 20080929
  Transmission Date: 20090506
  Serious: Yes (Other)
  Sender: FDA-Public Use
  Company Number: A0746802A

PATIENT
  Age: 63 Year
  Sex: Male
  Weight: 83.6 kg

DRUGS (7)
  1. COREG CR [Suspect]
     Indication: HYPERTENSION
     Route: 048
  2. NEXIUM [Concomitant]
  3. ALLOPURINOL [Concomitant]
  4. AZOR [Concomitant]
  5. COLCHICINE [Concomitant]
  6. XANAX [Concomitant]
  7. HYDROCODONE BITARTRATE [Concomitant]

REACTIONS (1)
  - GOUT [None]
